FAERS Safety Report 13301150 (Version 1)
Quarter: 2017Q1

REPORT INFORMATION
  Report Type: Spontaneous
  Country: US (occurrence: US)
  Receive Date: 20170306
  Receipt Date: 20170306
  Transmission Date: 20170428
  Serious: No
  Sender: FDA-Public Use
  Company Number: None

PATIENT
  Sex: Male
  Weight: 76.05 kg

DRUGS (6)
  1. MEMANTINE. [Concomitant]
     Active Substance: MEMANTINE
  2. DONEPEZIL. [Concomitant]
     Active Substance: DONEPEZIL
  3. CARBIDOPA/LEVODOPA [Suspect]
     Active Substance: CARBIDOPA\LEVODOPA
     Indication: PARKINSON^S DISEASE
     Route: 048
     Dates: start: 20170131, end: 20170305
  4. SILDENAFIL. [Concomitant]
     Active Substance: SILDENAFIL
  5. ATENOLOL. [Concomitant]
     Active Substance: ATENOLOL
  6. AMANTADINE [Concomitant]
     Active Substance: AMANTADINE

REACTIONS (3)
  - Confusional state [None]
  - Feeling drunk [None]
  - Drug ineffective [None]
